FAERS Safety Report 21830587 (Version 2)
Quarter: 2023Q1

REPORT INFORMATION
  Report Type: Spontaneous
  Country: JP (occurrence: JP)
  Receive Date: 20230106
  Receipt Date: 20230110
  Transmission Date: 20230418
  Serious: Yes (Other)
  Sender: FDA-Public Use
  Company Number: JP-MLMSERVICE-20221227-4008001-1

PATIENT
  Age: 68 Year
  Sex: Female

DRUGS (2)
  1. SOLU-MEDROL [Suspect]
     Active Substance: METHYLPREDNISOLONE SODIUM SUCCINATE
     Indication: Steroid therapy
     Dosage: 500 MG/DAY SOLU-MEDROL FOR 3 DAY; TWO PULSE STEROID TREATMENTS
  2. SOLU-MEDROL [Suspect]
     Active Substance: METHYLPREDNISOLONE SODIUM SUCCINATE
     Dosage: STEROID USE WAS GRADUALLY REDUCED AND DISCONTINUED

REACTIONS (1)
  - Cataract [Recovered/Resolved]
